FAERS Safety Report 4301031-2 (Version None)
Quarter: 2004Q1

REPORT INFORMATION
  Report Type: 
  Country: None (occurrence: None)
  Receive Date: 20040219
  Receipt Date: 20040203
  Transmission Date: 20041129
  Serious: Yes (Other)
  Sender: FDA-Public Use
  Company Number: PHNR2004AU00612

PATIENT
  Sex: Female

DRUGS (1)
  1. VISUDYNE [Suspect]

REACTIONS (4)
  - BLINDNESS UNILATERAL [None]
  - POST PROCEDURAL COMPLICATION [None]
  - RETINAL INFARCTION [None]
  - RETINAL VASCULAR OCCLUSION [None]
